FAERS Safety Report 7956355-4 (Version None)
Quarter: 2011Q4

REPORT INFORMATION
  Report Type: 
  Country: None (occurrence: None)
  Receive Date: 20111205
  Receipt Date: 20111128
  Transmission Date: 20120403
  Serious: Yes (Hospitalization)
  Sender: FDA-Public Use
  Company Number: FR-PFIZER INC-2011290637

PATIENT
  Age: 66 Year
  Sex: Male

DRUGS (7)
  1. PIPERACILLIN AND TAZOBACTAM [Suspect]
     Indication: SEPSIS
     Dosage: 4G/500MG TWICE DAILY
     Route: 042
     Dates: start: 20110405, end: 20110418
  2. SALBUTAMOL [Concomitant]
     Indication: CHRONIC OBSTRUCTIVE PULMONARY DISEASE
     Dosage: UNK
  3. PANTOPRAZOLE [Suspect]
     Dosage: 20 MG, 1X/DAY
     Route: 048
     Dates: start: 20110405, end: 20110420
  4. IPRATROPIUM [Concomitant]
     Indication: CHRONIC OBSTRUCTIVE PULMONARY DISEASE
     Dosage: UNK
  5. SYMBICORT [Concomitant]
     Indication: CHRONIC OBSTRUCTIVE PULMONARY DISEASE
     Dosage: UNK
  6. AMLODIPINE [Suspect]
     Dosage: 5 MG, UNK
     Route: 048
     Dates: start: 20110415, end: 20110420
  7. SIMVASTATIN [Suspect]
     Dosage: 20 MG, UNK
     Route: 048
     Dates: start: 20110415, end: 20110420

REACTIONS (4)
  - PRURITUS [None]
  - RASH ERYTHEMATOUS [None]
  - EOSINOPHILIA [None]
  - DIARRHOEA [None]
